FAERS Safety Report 6285464-3 (Version None)
Quarter: 2009Q3

REPORT INFORMATION
  Report Type: 
  Country: None (occurrence: None)
  Receive Date: 20090716
  Receipt Date: 20081010
  Transmission Date: 20100115
  Serious: Yes (Hospitalization)
  Sender: FDA-Public Use
  Company Number: 2008BI017030

PATIENT
  Sex: Female
  Weight: 56.246 kg

DRUGS (4)
  1. AVONEX [Suspect]
     Indication: MULTIPLE SCLEROSIS
     Dosage: IM
     Route: 030
     Dates: start: 19970801, end: 20040101
  2. POTASSIUM CHLORIDE [Concomitant]
  3. LASIX [Concomitant]
  4. .. [Concomitant]

REACTIONS (1)
  - CARDIAC FAILURE CONGESTIVE [None]
